FAERS Safety Report 7744765 (Version 19)
Quarter: 2015Q1

REPORT INFORMATION
  Report Type: Spontaneous
  Country: FR (occurrence: FR)
  Receive Date: 20101230
  Receipt Date: 20150325
  Transmission Date: 20150721
  Serious: Yes (Other)
  Sender: FDA-Public Use
  Company Number: FR-PFIZER INC-2010179435

PATIENT
  Age: 45 Year
  Sex: Female
  Weight: 71 kg

DRUGS (16)
  1. CHAMPIX [Suspect]
     Active Substance: VARENICLINE TARTRATE
     Dosage: 1 MG, 2X/DAY
     Route: 048
     Dates: start: 20100722, end: 20100809
  2. LANTUS [Concomitant]
     Active Substance: INSULIN GLARGINE
     Dosage: 100 IU/ML
     Dates: start: 20100129
  3. FONGAMIL [Concomitant]
     Dosage: UNK
     Dates: start: 20100309
  4. CHAMPIX [Suspect]
     Active Substance: VARENICLINE TARTRATE
     Indication: SMOKING CESSATION THERAPY
     Dosage: 0.5 MG, 1X/DAY
     Route: 048
     Dates: start: 20100718, end: 201007
  5. NAFTIDROFURYL [Concomitant]
     Active Substance: NAFRONYL
     Dosage: 200 MG
     Dates: start: 20100129
  6. NOVORAPID [Concomitant]
     Active Substance: INSULIN ASPART
     Dosage: 100 IU/ML
     Dates: start: 20100129
  7. TARDYFERON [Concomitant]
     Active Substance: FERROUS SULFATE\FOLIC ACID
     Dosage: 80 MG
     Dates: start: 20100129
  8. FONGAREX [Concomitant]
     Dosage: 900 MG
     Dates: start: 20100309
  9. MACROGOL [Concomitant]
     Active Substance: POLYETHYLENE GLYCOLS
     Dosage: 4000
     Dates: start: 20100527
  10. AERIUS [Concomitant]
     Active Substance: DESLORATADINE
     Dosage: 5 MG TABLET
     Dates: start: 20100129
  11. ABUFENE [Concomitant]
     Dosage: 400 MG
     Dates: start: 20100804
  12. LEVOTHYROX [Concomitant]
     Active Substance: LEVOTHYROXINE
     Dosage: 75 ?G
     Dates: start: 20100129
  13. KARDEGIC [Concomitant]
     Active Substance: ASPIRIN LYSINE
     Dosage: 75 MG
     Dates: start: 20100129
  14. COLOPEG [Concomitant]
     Active Substance: POLYETHYLENE GLYCOL 3350\POTASSIUM CHLORIDE\SODIUM BICARBONATE\SODIUM CHLORIDE\SODIUM SULFATE
     Dosage: UNK
     Dates: start: 20100527
  15. PLAVIX [Concomitant]
     Active Substance: CLOPIDOGREL BISULFATE
     Dosage: 75 MG TABLET
     Dates: start: 20100129
  16. JANUVIA [Concomitant]
     Active Substance: SITAGLIPTIN PHOSPHATE
     Dosage: 100 MG TABLET
     Dates: start: 20100129

REACTIONS (3)
  - Eosinophilic fasciitis [Recovered/Resolved]
  - Scleroedema [Recovered/Resolved]
  - Myositis [Recovered/Resolved]

NARRATIVE: CASE EVENT DATE: 201008
